FAERS Safety Report 8393978-5 (Version None)
Quarter: 2012Q2

REPORT INFORMATION
  Report Type: 
  Country: None (occurrence: None)
  Receive Date: 20120530
  Receipt Date: 20120525
  Transmission Date: 20120825
  Serious: Yes (Other)
  Sender: FDA-Public Use
  Company Number: US-BAYER-2012-052644

PATIENT
  Sex: Female

DRUGS (1)
  1. MIRENA [Suspect]
     Indication: CONTRACEPTION
     Dosage: 20MCG/DAY
     Route: 015
     Dates: end: 20120401

REACTIONS (4)
  - FEELING ABNORMAL [None]
  - MENSTRUATION IRREGULAR [None]
  - WEIGHT INCREASED [None]
  - POST PROCEDURAL HAEMORRHAGE [None]
